FAERS Safety Report 5562968-X (Version None)
Quarter: 2007Q4

REPORT INFORMATION
  Report Type: 
  Country: None (occurrence: None)
  Receive Date: 20071212
  Receipt Date: 20071212
  Transmission Date: 20080405
  Serious: Yes (Death, Life-Threatening, Hospitalization, Other)
  Sender: FDA-Public Use
  Company Number: None

PATIENT
  Sex: Male
  Weight: 74.8435 kg

DRUGS (2)
  1. EFFEXOR XR [Suspect]
     Indication: MAJOR DEPRESSION
     Dosage: 150 MG ONCE A DAY PO
     Route: 048
     Dates: start: 20060807, end: 20060907
  2. TRAZODONE HCL [Suspect]
     Indication: MAJOR DEPRESSION
     Dosage: 50 MG ONCE A DAY PO
     Route: 048
     Dates: start: 20060807, end: 20060907

REACTIONS (1)
  - COMPLETED SUICIDE [None]
